FAERS Safety Report 23568908 (Version 1)
Quarter: 2024Q1

REPORT INFORMATION
  Report Type: Report from Study
  Country: US (occurrence: US)
  Receive Date: 20240227
  Receipt Date: 20240227
  Transmission Date: 20240410
  Serious: No
  Sender: FDA-Public Use
  Company Number: US-ORG100014127-2023000671

PATIENT
  Age: 68 Year
  Sex: Male

DRUGS (10)
  1. METOPIRONE [Suspect]
     Active Substance: METYRAPONE
     Indication: Ectopic ACTH syndrome
     Dosage: 250 MG: 4 CAPSULES (1,000 MG TOTAL) 4 TIMES DAILY
     Route: 048
     Dates: start: 20230304
  2. ALDACTONE TAB 50MG [Concomitant]
     Indication: Product used for unknown indication
  3. AMLODIPINE [Concomitant]
     Active Substance: AMLODIPINE BESYLATE
     Indication: Product used for unknown indication
  4. BYSTOLIC TAB 2.5MG [Concomitant]
     Indication: Product used for unknown indication
  5. CALCIUM 500 TAB +D [Concomitant]
     Indication: Product used for unknown indication
  6. FERROUS SULF TAB 325MG [Concomitant]
     Indication: Product used for unknown indication
  7. LASIX TAB 20MG [Concomitant]
     Indication: Product used for unknown indication
  8. LISINOPRIL [Concomitant]
     Active Substance: LISINOPRIL
     Indication: Product used for unknown indication
  9. MELOXICAM [Concomitant]
     Active Substance: MELOXICAM
     Indication: Product used for unknown indication
  10. SIMVASTATIN [Concomitant]
     Active Substance: SIMVASTATIN
     Indication: Product used for unknown indication

REACTIONS (3)
  - Muscular weakness [Not Recovered/Not Resolved]
  - Diarrhoea [Not Recovered/Not Resolved]
  - Off label use [Not Recovered/Not Resolved]

NARRATIVE: CASE EVENT DATE: 20230304
